FAERS Safety Report 9156669 (Version 3)
Quarter: 2013Q3

REPORT INFORMATION
  Report Type: Spontaneous
  Country: US (occurrence: US)
  Receive Date: 20130312
  Receipt Date: 20130801
  Transmission Date: 20140515
  Serious: Yes (Hospitalization, Disabling, Other)
  Sender: FDA-Public Use
  Company Number: US-ASTRAZENECA-2013SE15602

PATIENT
  Age: 60 Year
  Sex: Female
  Weight: 67.1 kg

DRUGS (30)
  1. NEXIUM [Suspect]
     Indication: GASTROOESOPHAGEAL REFLUX DISEASE
     Route: 048
     Dates: start: 1990, end: 201205
  2. NEXIUM [Suspect]
     Indication: DYSPEPSIA
     Route: 048
     Dates: start: 1990, end: 201205
  3. NEXIUM [Suspect]
     Indication: GASTROOESOPHAGEAL REFLUX DISEASE
     Dosage: EVERY DAY
     Route: 048
     Dates: start: 2006, end: 2012
  4. NEXIUM [Suspect]
     Indication: DYSPEPSIA
     Dosage: EVERY DAY
     Route: 048
     Dates: start: 2006, end: 2012
  5. NEXIUM [Suspect]
     Indication: GASTROOESOPHAGEAL REFLUX DISEASE
     Dosage: 2 TIMES A DAY
     Route: 048
  6. NEXIUM [Suspect]
     Indication: DYSPEPSIA
     Dosage: 2 TIMES A DAY
     Route: 048
  7. ACIPHEX [Concomitant]
     Dates: start: 1990
  8. PROTONIX [Concomitant]
     Dates: start: 1990
  9. DEXILANT/KAPIDEX [Concomitant]
     Dates: start: 2007
  10. PREVACID [Concomitant]
  11. ZANTAC [Concomitant]
     Dates: start: 201205
  12. TUMS [Concomitant]
     Dosage: ONCE A MONTH AT MOST
     Dates: start: 201205
  13. EFFEXOR [Concomitant]
     Dates: start: 201206
  14. TRAZADONE [Concomitant]
     Dates: start: 201206
  15. KLONOPIN [Concomitant]
     Dates: start: 201206
  16. VICODON [Concomitant]
     Dates: start: 20120527
  17. LORATADINE [Concomitant]
     Indication: MULTIPLE ALLERGIES
  18. NIACIN [Concomitant]
  19. FISH OIL [Concomitant]
  20. CALCIUM WITH VITAMIN D [Concomitant]
  21. MULTIVITAMIN [Concomitant]
  22. BONIVA [Concomitant]
     Dates: end: 2011
  23. PROVENTIL [Concomitant]
     Dates: end: 2011
  24. ACTONEL/BONIVA [Concomitant]
     Dates: start: 2000
  25. PREMPRO [Concomitant]
     Dates: start: 1999
  26. MUSCLE RELAXANT [Concomitant]
  27. PAIN MEDICATION [Concomitant]
  28. MIGRAINE MEDICATION [Concomitant]
  29. TOPAMAX [Concomitant]
     Dates: start: 200611
  30. FLEXERIL [Concomitant]
     Dates: start: 200611

REACTIONS (19)
  - Activities of daily living impaired [Unknown]
  - Carpal tunnel syndrome [Unknown]
  - Ulna fracture [Unknown]
  - Fall [Unknown]
  - Laceration [Unknown]
  - Bone disorder [Unknown]
  - Wrist fracture [Unknown]
  - Renal mass [Unknown]
  - Spinal compression fracture [Unknown]
  - Radius fracture [Unknown]
  - Upper limb fracture [Unknown]
  - Foot fracture [Unknown]
  - Stress [Unknown]
  - Hypertension [Unknown]
  - Osteoporosis [Unknown]
  - Bone density decreased [Unknown]
  - Depression [Unknown]
  - Nausea [Unknown]
  - Vomiting [Unknown]
